FAERS Safety Report 20573547 (Version 3)
Quarter: 2022Q1

REPORT INFORMATION
  Report Type: Report from Study
  Country: US (occurrence: US)
  Receive Date: 20220309
  Receipt Date: 20220317
  Transmission Date: 20220423
  Serious: Yes (Death, Other)
  Sender: FDA-Public Use
  Company Number: US-NOVARTISPH-NVSC2022US055385

PATIENT
  Sex: Female
  Weight: 107.94 kg

DRUGS (18)
  1. ENTRESTO [Suspect]
     Active Substance: SACUBITRIL\VALSARTAN
     Indication: Product used for unknown indication
     Dosage: 1 DOSAGE FORM, BID
     Route: 048
  2. AZOPT [Concomitant]
     Active Substance: BRINZOLAMIDE
     Indication: Product used for unknown indication
     Dosage: 1 DROP, TID (INSTILL 1 DROP TO EFFECTED EYE)
     Route: 047
  3. ALPHAGAN P [Concomitant]
     Active Substance: BRIMONIDINE TARTRATE
     Indication: Product used for unknown indication
     Dosage: 1 DROP, Q8H (SOLUTION INSTILL 1 DROP TO AFFECTED EYE)
     Route: 047
  4. LEVEMIR [Concomitant]
     Active Substance: INSULIN DETEMIR
     Indication: Product used for unknown indication
     Dosage: UNK (INSULIN PEN INJECT 32 UNITS PER DAY)
     Route: 058
  5. LEVEMIR [Concomitant]
     Active Substance: INSULIN DETEMIR
     Dosage: UNK (100 UNITS/ML SOLUTION INJECT 32 UNITS UNDER THE SKIN)
     Route: 065
  6. INSULIN NOS [Concomitant]
     Active Substance: INSULIN NOS
     Indication: Product used for unknown indication
     Dosage: UNK (31 GAUGEX5/16 SYRINGE, EMPYT DISPOSABLE USE THREE TIME A DAY)
     Route: 065
  7. BUMETANIDE [Concomitant]
     Active Substance: BUMETANIDE
     Indication: Product used for unknown indication
     Dosage: 1 DOSAGE FORM, BID
     Route: 048
  8. KLOR-CON [Concomitant]
     Active Substance: POTASSIUM CHLORIDE
     Indication: Product used for unknown indication
     Dosage: 1 DOSAGE FORM, BID
     Route: 048
  9. XOPENEX [Concomitant]
     Active Substance: LEVALBUTEROL HYDROCHLORIDE
     Indication: Product used for unknown indication
     Dosage: UNK, TID (1 VIAL, EVERY 6-8 HOURS APART)
     Route: 065
  10. XOPENEX [Concomitant]
     Active Substance: LEVALBUTEROL HYDROCHLORIDE
     Dosage: UNK, PRN (EVERY 8 HRS)
     Route: 055
  11. AZITHROMYCIN [Concomitant]
     Active Substance: AZITHROMYCIN
     Indication: Product used for unknown indication
     Dosage: 2 DOSAGE FORM (ON FIRST DATE)
     Route: 048
  12. AZITHROMYCIN [Concomitant]
     Active Substance: AZITHROMYCIN
     Dosage: 1 DOSAGE FORM, QD (FOR 4 DAYS)
     Route: 048
  13. PROAIR HFA [Concomitant]
     Active Substance: ALBUTEROL SULFATE
     Indication: Product used for unknown indication
     Dosage: UNK, Q4H (108 MCG)
     Route: 055
  14. PROAIR HFA [Concomitant]
     Active Substance: ALBUTEROL SULFATE
     Dosage: UNK, Q4H (90 MCG)
     Route: 065
  15. MEDROL [Concomitant]
     Active Substance: METHYLPREDNISOLONE
     Indication: Product used for unknown indication
     Dosage: UNK, QD
     Route: 048
  16. SIMVASTATIN [Concomitant]
     Active Substance: SIMVASTATIN
     Indication: Product used for unknown indication
     Dosage: 1 DOSAGE FORM, QD
     Route: 048
  17. NOVOLOG [Concomitant]
     Active Substance: INSULIN ASPART
     Indication: Product used for unknown indication
     Dosage: UNK, TID (100 UNITS/ML SOLUTION INJECT 15 UNITS UNDER THE SKIN THREE TIMES A DAY AS DIRECTED)
     Route: 065
  18. CARVEDILOL [Concomitant]
     Active Substance: CARVEDILOL
     Indication: Product used for unknown indication
     Dosage: 1 DOSAGE FORM, BID
     Route: 048

REACTIONS (23)
  - Death [Fatal]
  - Retinal haemorrhage [Unknown]
  - Acute left ventricular failure [Unknown]
  - Type 2 diabetes mellitus [Unknown]
  - Blindness [Unknown]
  - Pulmonary arterial hypertension [Unknown]
  - Congestive cardiomyopathy [Unknown]
  - Cardiac failure [Unknown]
  - Nephritic syndrome [Unknown]
  - Atrial fibrillation [Unknown]
  - Mitral valve incompetence [Unknown]
  - Aortic valve incompetence [Unknown]
  - Weight increased [Unknown]
  - Dyspnoea [Unknown]
  - Cardiac murmur [Unknown]
  - Rales [Unknown]
  - Oedema peripheral [Unknown]
  - Hyperlipidaemia [Unknown]
  - Diabetic retinopathy [Unknown]
  - Diabetic neuropathy [Unknown]
  - Diabetic vascular disorder [Unknown]
  - Obesity [Unknown]
  - Atrial flutter [Unknown]
